FAERS Safety Report 13189359 (Version 2)
Quarter: 2017Q1

REPORT INFORMATION
  Report Type: Spontaneous
  Country: JP (occurrence: JP)
  Receive Date: 20170206
  Receipt Date: 20170215
  Transmission Date: 20170428
  Serious: Yes (Other)
  Sender: FDA-Public Use
  Company Number: JP-GILEAD-2017-0256731

PATIENT
  Age: 2 Year
  Sex: Male

DRUGS (18)
  1. SOTALOL HYDROCHLORIDE. [Suspect]
     Active Substance: SOTALOL HYDROCHLORIDE
     Indication: ATRIAL TACHYCARDIA
     Route: 048
  2. FENTANYL. [Concomitant]
     Active Substance: FENTANYL
     Dosage: UNK
  3. DIAZEPAM. [Concomitant]
     Active Substance: DIAZEPAM
     Dosage: UNK
  4. AMBRISENTAN [Suspect]
     Active Substance: AMBRISENTAN
     Indication: PULMONARY HYPERTENSION
     Dosage: 1 MG, QD
     Route: 048
     Dates: start: 20170125, end: 20170127
  5. REVATIO [Suspect]
     Active Substance: SILDENAFIL CITRATE
     Indication: PRODUCT USED FOR UNKNOWN INDICATION
     Dosage: UNK
     Route: 048
  6. MANNITOL. [Concomitant]
     Active Substance: MANNITOL
     Dosage: UNK
  7. PRANLUKAST [Concomitant]
     Active Substance: PRANLUKAST
     Dosage: UNK
  8. BIOFERMIN R (JAPAN) [Concomitant]
     Dosage: UNK
  9. FUROSEMIDE. [Concomitant]
     Active Substance: FUROSEMIDE
     Dosage: UNK
  10. ASPARA K [Concomitant]
     Active Substance: POTASSIUM ASPARTATE
     Dosage: UNK
  11. DIAMOX SEQUELS [Concomitant]
     Active Substance: ACETAZOLAMIDE
     Dosage: UNK
  12. TRICLORYL [Concomitant]
     Active Substance: TRICLOFOS SODIUM
     Dosage: UNK
  13. NOREPINEPHRINE [Concomitant]
     Active Substance: NOREPINEPHRINE\NOREPINEPHRINE BITARTRATE
     Dosage: UNK
  14. GOREISAN [Concomitant]
     Active Substance: HERBALS
     Dosage: UNK
  15. BOSMIN [Concomitant]
     Active Substance: EPINEPHRINE
     Dosage: UNK
  16. MEROPEN [Concomitant]
     Active Substance: MEROPENEM
     Dosage: UNK
  17. CUBICIN [Concomitant]
     Active Substance: DAPTOMYCIN
     Dosage: UNK
  18. THYRADIN S [Concomitant]
     Active Substance: LEVOTHYROXINE SODIUM
     Dosage: UNK

REACTIONS (7)
  - Sinoatrial block [Recovered/Resolved]
  - Wrong technique in product usage process [Unknown]
  - Bradycardia [Recovered/Resolved]
  - Sinus node dysfunction [Recovered/Resolved]
  - Drug administered to patient of inappropriate age [Unknown]
  - Off label use [Unknown]
  - Incorrect route of drug administration [Unknown]

NARRATIVE: CASE EVENT DATE: 20170126
